FAERS Safety Report 4730938-7 (Version None)
Quarter: 2005Q3

REPORT INFORMATION
  Report Type: 
  Country: None (occurrence: None)
  Receive Date: 20050801
  Receipt Date: 20020516
  Transmission Date: 20060218
  Serious: Yes (Hospitalization, Other)
  Sender: FDA-Public Use
  Company Number: US-MERCK-0205USA02077

PATIENT
  Age: 83 Year
  Sex: Female
  Weight: 61 kg

DRUGS (1)
  1. VIOXX [Suspect]
     Route: 048
     Dates: start: 20010101

REACTIONS (31)
  - ANXIETY [None]
  - AORTIC VALVE STENOSIS [None]
  - ARTHRALGIA [None]
  - ASTHENIA [None]
  - CAROTID ARTERY DISEASE [None]
  - CEREBROVASCULAR ACCIDENT [None]
  - CLOSED HEAD INJURY [None]
  - CONCUSSION [None]
  - CORONARY ARTERY DISEASE [None]
  - DECREASED APPETITE [None]
  - DECUBITUS ULCER [None]
  - DEMENTIA ALZHEIMER'S TYPE [None]
  - DIFFICULTY IN WALKING [None]
  - DIZZINESS [None]
  - DRUG HYPERSENSITIVITY [None]
  - DRY MOUTH [None]
  - FAECALOMA [None]
  - FALL [None]
  - HYPOKALAEMIA [None]
  - INJURY [None]
  - INSOMNIA [None]
  - JOINT SWELLING [None]
  - LACERATION [None]
  - MYOCARDIAL ISCHAEMIA [None]
  - PAIN IN EXTREMITY [None]
  - PARKINSON'S DISEASE [None]
  - RENAL CYST [None]
  - SEASONAL ALLERGY [None]
  - SKIN ULCER [None]
  - URINARY RETENTION [None]
  - URINARY TRACT INFECTION [None]
